FAERS Safety Report 6233996-6 (Version None)
Quarter: 2009Q2

REPORT INFORMATION
  Report Type: 
  Country: None (occurrence: None)
  Receive Date: 20090612
  Receipt Date: 20090604
  Transmission Date: 20091009
  Serious: Yes (Death)
  Sender: FDA-Public Use
  Company Number: CR-WYE-H09602709

PATIENT
  Sex: Male

DRUGS (1)
  1. PANTECTA (PANTOPRAZOLE, TABLET, DELAYED RELEASE) [Suspect]
     Dosage: 40 MG, FREQUENCY UNSPECIFIED ORAL
     Route: 048

REACTIONS (1)
  - DEATH [None]
